FAERS Safety Report 11230271 (Version 3)
Quarter: 2015Q3

REPORT INFORMATION
  Report Type: Report from Study
  Country: BR (occurrence: BR)
  Receive Date: 20150701
  Receipt Date: 20150724
  Transmission Date: 20151125
  Serious: Yes (Hospitalization)
  Sender: FDA-Public Use
  Company Number: PHHY2015BR035163

PATIENT
  Age: 46 Year
  Sex: Female
  Weight: 76.8 kg

DRUGS (4)
  1. GILENYA [Suspect]
     Active Substance: FINGOLIMOD HYDROCHLORIDE
     Indication: MULTIPLE SCLEROSIS
     Dosage: 1 DF, QD
     Route: 048
     Dates: start: 201401
  2. GILENYA [Suspect]
     Active Substance: FINGOLIMOD HYDROCHLORIDE
     Dosage: 1 DF, QD (AT NIGHT)
     Route: 065
  3. PURAN [Concomitant]
     Active Substance: LEVOTHYROXINE SODIUM
     Indication: PRODUCT USED FOR UNKNOWN INDICATION
     Dosage: 50 MG, UNK
     Route: 065
  4. GILENYA [Suspect]
     Active Substance: FINGOLIMOD HYDROCHLORIDE
     Dosage: 0.5 MG, UNK
     Route: 065
     Dates: start: 201504, end: 201505

REACTIONS (20)
  - Asthenia [Unknown]
  - Weight increased [Unknown]
  - Speech disorder [Unknown]
  - Paraesthesia [Not Recovered/Not Resolved]
  - Stress [Unknown]
  - Movement disorder [Unknown]
  - Back pain [Unknown]
  - Fear [Unknown]
  - Hemiplegia [Not Recovered/Not Resolved]
  - Emotional disorder [Unknown]
  - Anxiety [Unknown]
  - Pain [Unknown]
  - Seizure [Not Recovered/Not Resolved]
  - Hypoaesthesia [Unknown]
  - Nervousness [Unknown]
  - Abasia [Unknown]
  - Swelling [Unknown]
  - Multiple sclerosis relapse [Not Recovered/Not Resolved]
  - Memory impairment [Unknown]
  - Somnolence [Recovering/Resolving]

NARRATIVE: CASE EVENT DATE: 201505
